FAERS Safety Report 5836276-3 (Version None)
Quarter: 2008Q3

REPORT INFORMATION
  Report Type: 
  Country: None (occurrence: None)
  Receive Date: 20080730
  Receipt Date: 20080715
  Transmission Date: 20090109
  Serious: Yes (Other)
  Sender: FDA-Public Use
  Company Number: PBAR-7GKL6L

PATIENT
  Sex: Female

DRUGS (5)
  1. DURAPREP [Suspect]
     Indication: PREOPERATIVE CARE
     Dosage: TOPICAL SOLUTION
  2. STERI-STRIPS [Concomitant]
  3. GAUZE [Concomitant]
  4. MEDICAL TAPE/PRESSURE BANDAGE [Concomitant]
  5. MICRODON + PAD [Concomitant]

REACTIONS (2)
  - BLISTER [None]
  - PRURITUS [None]
